FAERS Safety Report 24328891 (Version 1)
Quarter: 2024Q3

REPORT INFORMATION
  Report Type: Spontaneous
  Country: FR (occurrence: FR)
  Receive Date: 20240917
  Receipt Date: 20240917
  Transmission Date: 20241016
  Serious: Yes (Hospitalization, Other)
  Sender: MERCK
  Company Number: None

PATIENT
  Age: 69 Year
  Sex: Male
  Weight: 72 kg

DRUGS (6)
  1. ZERBAXA [Suspect]
     Active Substance: CEFTOLOZANE SULFATE\TAZOBACTAM SODIUM
     Indication: Transplant abscess
     Dosage: 1 GRAM (ALSO REPORTED AS 1 I HAVE) EVERY 8 HOURS
     Route: 042
     Dates: start: 20230606, end: 20230803
  2. LANSOPRAZOLE [Suspect]
     Active Substance: LANSOPRAZOLE
     Indication: Prophylaxis against gastrointestinal ulcer
     Dosage: 15 MILLIGRAM (ALSO REPORTED AS 1 TEASPOON PER DAY), QD
     Route: 048
     Dates: start: 20230623, end: 20230731
  3. CASPOFUNGIN ACETATE [Suspect]
     Active Substance: CASPOFUNGIN ACETATE
     Indication: Candida infection
     Dosage: 50 MG PER DAY
     Route: 042
     Dates: start: 20230521, end: 20230725
  4. TEICOPLANIN [Suspect]
     Active Substance: TEICOPLANIN
     Indication: Transplant abscess
     Dosage: 780 MG ONCE DAILY
     Route: 042
     Dates: start: 20230527, end: 20230730
  5. FUROSEMIDE [Suspect]
     Active Substance: FUROSEMIDE
     Indication: Oedema
     Dosage: 40 MG (ALSO REPORTED AS 1 TABLET) PER DAY
     Route: 048
     Dates: start: 20230713, end: 20230730
  6. ALFUZOSIN [Suspect]
     Active Substance: ALFUZOSIN
     Indication: Benign prostatic hyperplasia
     Dosage: 10 MG (ALSO REPORTED AS 1 TABLET) PER DAY
     Route: 048
     Dates: start: 20230714, end: 20230725

REACTIONS (1)
  - Agranulocytosis [Recovered/Resolved]

NARRATIVE: CASE EVENT DATE: 20230720
